FAERS Safety Report 4820036-6 (Version None)
Quarter: 2005Q4

REPORT INFORMATION
  Report Type: 
  Country: None (occurrence: None)
  Receive Date: 20051031
  Receipt Date: 20050826
  Transmission Date: 20060501
  Serious: No
  Sender: FDA-Public Use
  Company Number: WAES 0508USA04370

PATIENT
  Sex: Female

DRUGS (3)
  1. EMEND [Suspect]
     Indication: NAUSEA
     Dosage: 125 MG/1X/PO
     Route: 048
     Dates: start: 20050825, end: 20050825
  2. THERAPY UNSPECIFIED [Concomitant]
  3. ANTINEOPLASTIC (UNSPECIFIED) [Concomitant]

REACTIONS (1)
  - DYSPHAGIA [None]
